FAERS Safety Report 10162260 (Version 1)
Quarter: 2014Q2

REPORT INFORMATION
  Report Type: Spontaneous
  Country: GB (occurrence: GB)
  Receive Date: 20140509
  Receipt Date: 20140509
  Transmission Date: 20141212
  Serious: Yes (Disabling)
  Sender: FDA-Public Use
  Company Number: GB-JNJFOC-20140503109

PATIENT
  Age: 80 Year
  Sex: Male
  Weight: 79 kg

DRUGS (6)
  1. XARELTO [Suspect]
     Indication: PRODUCT USED FOR UNKNOWN INDICATION
     Route: 048
     Dates: start: 20140403
  2. CLEXANE [Concomitant]
     Route: 065
     Dates: start: 20140108, end: 20140331
  3. LANSOPRAZOLE [Concomitant]
     Route: 065
     Dates: start: 20140108
  4. PARACETAMOL [Concomitant]
     Route: 065
     Dates: start: 20140108
  5. THIAMINE [Concomitant]
     Route: 065
     Dates: start: 20140108
  6. VITAMIN B [Concomitant]
     Route: 065
     Dates: start: 20140108

REACTIONS (1)
  - Dizziness [Recovered/Resolved]
